FAERS Safety Report 7560938-3 (Version None)
Quarter: 2011Q2

REPORT INFORMATION
  Report Type: 
  Country: None (occurrence: None)
  Receive Date: 20110620
  Receipt Date: 20110620
  Transmission Date: 20111010
  Serious: Yes (Other)
  Sender: FDA-Public Use
  Company Number: None

PATIENT
  Age: 7 Year
  Sex: Male
  Weight: 21.7727 kg

DRUGS (1)
  1. MONTELUKAST SODIUM [Suspect]
     Indication: NASAL CONGESTION
     Dosage: 5 MG ONCE PER DAY
     Dates: start: 20110517, end: 20110617

REACTIONS (9)
  - INCORRECT DOSE ADMINISTERED [None]
  - THINKING ABNORMAL [None]
  - MUSCULOSKELETAL STIFFNESS [None]
  - IRRITABILITY [None]
  - WITHDRAWAL SYNDROME [None]
  - GAIT DISTURBANCE [None]
  - ANXIETY [None]
  - EXCESSIVE EYE BLINKING [None]
  - AGITATION [None]
